FAERS Safety Report 11378762 (Version 1)
Quarter: 2015Q3

REPORT INFORMATION
  Report Type: Spontaneous
  Country: US (occurrence: US)
  Receive Date: 20150811
  Receipt Date: 20150811
  Transmission Date: 20151125
  Serious: No
  Sender: FDA-Public Use
  Company Number: US-ELI_LILLY_AND_COMPANY-US200905003998

PATIENT
  Sex: Male

DRUGS (2)
  1. HUMULIN R [Suspect]
     Active Substance: INSULIN HUMAN
     Dosage: 2.5 U, EVERY HOUR
     Route: 058
  2. HUMULIN R [Suspect]
     Active Substance: INSULIN HUMAN
     Dosage: 9 U, EVERY HOUR
     Route: 058
     Dates: start: 2008

REACTIONS (2)
  - Blood glucose increased [Unknown]
  - Injection site nodule [Unknown]

NARRATIVE: CASE EVENT DATE: 200901
